FAERS Safety Report 23738113 (Version 1)
Quarter: 2024Q2

REPORT INFORMATION
  Report Type: Spontaneous
  Country: EE (occurrence: EE)
  Receive Date: 20240412
  Receipt Date: 20240412
  Transmission Date: 20240716
  Serious: Yes (Hospitalization)
  Sender: FDA-Public Use
  Company Number: EE-HQ SPECIALTY-EE-2024INT000033

PATIENT
  Age: 9 Year

DRUGS (5)
  1. DEXMEDETOMIDINE HYDROCHLORIDE [Suspect]
     Active Substance: DEXMEDETOMIDINE HYDROCHLORIDE
     Indication: Sedative therapy
     Dosage: CONTINUOUS INFUSION
     Dates: start: 20191222
  2. PROPOFOL [Suspect]
     Active Substance: PROPOFOL
     Indication: Sedative therapy
     Dosage: CONTINUOUS INFUSION
  3. PROPOFOL [Suspect]
     Active Substance: PROPOFOL
     Dosage: SEDATION WITH PROPOFOL 20 ML/H (= 8 MG/KG/H) WAS CONTINUED
     Dates: start: 20191222
  4. PROPOFOL [Suspect]
     Active Substance: PROPOFOL
     Dosage: DOSE REDUCED
     Dates: start: 20191222
  5. PROPOFOL [Suspect]
     Active Substance: PROPOFOL
     Dosage: RATE OF PROPOFOL INFUSION WAS REDUCED TO 12 ML/H (= 4.8 MG/KG/H)
     Route: 041
     Dates: start: 20191223

REACTIONS (2)
  - Blood triglycerides increased [Unknown]
  - Off label use [Unknown]

NARRATIVE: CASE EVENT DATE: 20191222
